FAERS Safety Report 13352256 (Version 1)
Quarter: 2017Q1

REPORT INFORMATION
  Report Type: Spontaneous
  Country: PL (occurrence: PL)
  Receive Date: 20170320
  Receipt Date: 20170320
  Transmission Date: 20170429
  Serious: Yes (Hospitalization)
  Sender: FDA-Public Use
  Company Number: PL-BAUSCH-BL-2017-007095

PATIENT
  Age: 54 Year
  Sex: Female

DRUGS (3)
  1. FLUOROURACIL. [Suspect]
     Active Substance: FLUOROURACIL
     Indication: SMALL INTESTINE ADENOCARCINOMA
     Route: 065
     Dates: start: 2013
  2. CISPLATIN. [Concomitant]
     Active Substance: CISPLATIN
     Indication: PRODUCT USED FOR UNKNOWN INDICATION
  3. LEUCOVORIN. [Suspect]
     Active Substance: LEUCOVORIN
     Indication: SMALL INTESTINE ADENOCARCINOMA
     Route: 065
     Dates: start: 2013

REACTIONS (2)
  - Enterocutaneous fistula [Recovered/Resolved]
  - Impaired healing [Recovered/Resolved]
